FAERS Safety Report 13410490 (Version 2)
Quarter: 2017Q4

REPORT INFORMATION
  Report Type: Spontaneous
  Country: US (occurrence: US)
  Receive Date: 20170406
  Receipt Date: 20171123
  Transmission Date: 20180320
  Serious: No
  Sender: FDA-Public Use
  Company Number: US-JNJFOC-20170227370

PATIENT
  Sex: Male

DRUGS (3)
  1. RISPERDAL [Suspect]
     Active Substance: RISPERIDONE
     Indication: OPPOSITIONAL DEFIANT DISORDER
     Dosage: VARYING DOSES OF 0.5, MG, 1 MG, 2 MG, 3 MG, 3.5 MG, 4 MG, 5 MG, 6 MG AND 7 MG
     Route: 048
     Dates: start: 20001016, end: 20020412
  2. RISPERDAL [Suspect]
     Active Substance: RISPERIDONE
     Indication: BIPOLAR DISORDER
     Dosage: VARYING DOSES OF 0.5, MG, 1 MG, 2 MG, 3 MG, 3.5 MG, 4 MG, 5 MG, 6 MG AND 7 MG
     Route: 048
     Dates: start: 20001016, end: 20020412
  3. RISPERDAL [Suspect]
     Active Substance: RISPERIDONE
     Indication: ATTENTION DEFICIT/HYPERACTIVITY DISORDER
     Dosage: VARYING DOSES OF 0.5, MG, 1 MG, 2 MG, 3 MG, 3.5 MG, 4 MG, 5 MG, 6 MG AND 7 MG
     Route: 048
     Dates: start: 20001016, end: 20020412

REACTIONS (2)
  - Gynaecomastia [Unknown]
  - Emotional disorder [Unknown]
